FAERS Safety Report 19879876 (Version 2)
Quarter: 2021Q4

REPORT INFORMATION
  Report Type: Other
  Country: US (occurrence: None)
  Receive Date: 20210924
  Receipt Date: 20211203
  Transmission Date: 20220304
  Serious: Yes (Hospitalization, Other)
  Sender: FDA-Public Use
  Company Number: US-ROCHE-2717575

PATIENT
  Sex: Male
  Weight: 99.880 kg

DRUGS (20)
  1. OCREVUS [Suspect]
     Active Substance: OCRELIZUMAB
     Indication: Relapsing multiple sclerosis
     Dosage: PRESCRIBED WITH 300 MG DAY 1 THEN 300 MG DAY 15 AND LATER 600 MG EVERY 6 MONTHS?DATE OF TREATMENT: 2
     Route: 042
     Dates: start: 20191115, end: 20191129
  2. OCREVUS [Suspect]
     Active Substance: OCRELIZUMAB
     Dosage: (PRESCRIBED AS 300 MG ON DAY 1 AND DAY 15 AND 6-- MG ONCE IN 6 MONTHS)
     Route: 042
     Dates: start: 2015, end: 2018
  3. COPAXONE [Suspect]
     Active Substance: GLATIRAMER ACETATE
     Indication: Multiple sclerosis
     Route: 065
  4. ELIQUIS [Concomitant]
     Active Substance: APIXABAN
     Indication: Coronary artery disease
  5. BREO ELLIPTA [Concomitant]
     Active Substance: FLUTICASONE FUROATE\VILANTEROL TRIFENATATE
  6. ROPINIROLE [Concomitant]
     Active Substance: ROPINIROLE
  7. LOVASTATIN [Concomitant]
     Active Substance: LOVASTATIN
     Indication: Blood cholesterol
  8. LISINOPRIL [Concomitant]
     Active Substance: LISINOPRIL
  9. GABAPENTIN [Concomitant]
     Active Substance: GABAPENTIN
  10. TAMSULOSIN [Concomitant]
     Active Substance: TAMSULOSIN
  11. CITALOPRAM [Concomitant]
     Active Substance: CITALOPRAM HYDROBROMIDE
  12. METOPROLOL [Concomitant]
     Active Substance: METOPROLOL
     Dosage: EXTENDED RELEASE
  13. DIGOXIN [Concomitant]
     Active Substance: DIGOXIN
  14. MINERALS\VITAMINS [Concomitant]
     Active Substance: MINERALS\VITAMINS
  15. VITAMIN B12 [Concomitant]
     Active Substance: CYANOCOBALAMIN
  16. VITAMIN D3 [Concomitant]
     Active Substance: CHOLECALCIFEROL
  17. BENZONATATE [Concomitant]
     Active Substance: BENZONATATE
  18. TYLENOL [Concomitant]
     Active Substance: ACETAMINOPHEN
     Dosage: ARTHRITIS STRENGTH
  19. NORTRIPTYLINE HYDROCHLORIDE [Concomitant]
     Active Substance: NORTRIPTYLINE HYDROCHLORIDE
     Dosage: 50MG TABLET ONCE AT BEDTIME FOR 30 DAYS. AS REQUIRED
  20. POTASSIUM [Concomitant]
     Active Substance: POTASSIUM

REACTIONS (12)
  - Multiple sclerosis relapse [Unknown]
  - Cerebrovascular accident [Not Recovered/Not Resolved]
  - Haemorrhage [Unknown]
  - COVID-19 [Recovered/Resolved]
  - Coronary artery disease [Not Recovered/Not Resolved]
  - Hypoaesthesia [Unknown]
  - Paralysis [Unknown]
  - Therapeutic response shortened [Unknown]
  - Muscular weakness [Unknown]
  - Ill-defined disorder [Unknown]
  - Dysgraphia [Not Recovered/Not Resolved]
  - Amnesia [Unknown]

NARRATIVE: CASE EVENT DATE: 20180101
